FAERS Safety Report 6055005 (Version 6)
Quarter: 2014Q2

REPORT INFORMATION
  Report Type: Spontaneous
  Country: DE (occurrence: DE)
  Receive Date: 20060516
  Receipt Date: 20140414
  Transmission Date: 20141212
  Serious: Yes (Other)
  Sender: FDA-Public Use
  Company Number: 2006BI006665

PATIENT
  Age: 58 Year
  Sex: Female
  Weight: 86 kg

DRUGS (5)
  1. AVONEX [Suspect]
     Indication: MULTIPLE SCLEROSIS
     Route: 030
     Dates: start: 20011101, end: 2003
  2. AVONEX [Suspect]
     Indication: MULTIPLE SCLEROSIS
     Route: 030
     Dates: start: 2003, end: 2006
  3. AVONEX [Suspect]
     Indication: MULTIPLE SCLEROSIS
     Route: 030
     Dates: start: 2006, end: 20131201
  4. SYNTHROID [Concomitant]
     Indication: THYROID DISORDER
     Route: 048
  5. MYDOCALM [Concomitant]
     Indication: MUSCLE SPASTICITY
     Route: 048

REACTIONS (4)
  - Breast cancer [Not Recovered/Not Resolved]
  - Injection site erythema [Not Recovered/Not Resolved]
  - Injection site swelling [Not Recovered/Not Resolved]
  - Influenza like illness [Recovered/Resolved]
